FAERS Safety Report 15121075 (Version 1)
Quarter: 2018Q3

REPORT INFORMATION
  Report Type: Spontaneous
  Country: US (occurrence: US)
  Receive Date: 20180709
  Receipt Date: 20180709
  Transmission Date: 20181010
  Serious: Yes (Other)
  Sender: FDA-Public Use
  Company Number: US-SA-2018SA076406

PATIENT
  Age: 38 Year
  Sex: Female
  Weight: 111 kg

DRUGS (7)
  1. TAXOTERE [Suspect]
     Active Substance: DOCETAXEL
     Indication: BREAST CANCER FEMALE
     Dosage: 140 MG,QOW
     Route: 042
     Dates: start: 20080128, end: 20080128
  2. ADRIAMYCIN [DOXORUBICIN] [Concomitant]
  3. INSULIN DETEMIR [Concomitant]
     Active Substance: INSULIN DETEMIR
  4. TAXOTERE [Suspect]
     Active Substance: DOCETAXEL
     Dosage: 140 MG,QOW
     Route: 042
     Dates: start: 20020709, end: 20020709
  5. HUMALOG [Concomitant]
     Active Substance: INSULIN LISPRO
  6. LEVEMIR [Concomitant]
     Active Substance: INSULIN DETEMIR
  7. NEOSAR [Concomitant]
     Active Substance: CYCLOPHOSPHAMIDE

REACTIONS (6)
  - Alopecia [Not Recovered/Not Resolved]
  - Impaired quality of life [Unknown]
  - Anxiety [Unknown]
  - Psychological trauma [Unknown]
  - Emotional distress [Unknown]
  - Pain [Unknown]

NARRATIVE: CASE EVENT DATE: 20020122
